FAERS Safety Report 15738546 (Version 2)
Quarter: 2019Q1

REPORT INFORMATION
  Report Type: Spontaneous
  Country: US (occurrence: US)
  Receive Date: 20181219
  Receipt Date: 20190124
  Transmission Date: 20190417
  Serious: No
  Sender: FDA-Public Use
  Company Number: US-PFIZER INC-2018520939

PATIENT
  Age: 59 Year
  Sex: Female

DRUGS (2)
  1. VIROPTIC [Suspect]
     Active Substance: TRIFLURIDINE
     Dosage: UP TO 9 DROPS 2 DAY TITRATED OFF TO 1 THEN NOTHING
     Route: 047
  2. VIROPTIC [Suspect]
     Active Substance: TRIFLURIDINE
     Indication: KERATITIS
     Dosage: 1% 7 ML SOLUTION, UNK
     Route: 047

REACTIONS (8)
  - Eye swelling [Unknown]
  - Incorrect dose administered [Unknown]
  - Pruritus [Unknown]
  - Eye oedema [Unknown]
  - Product quality issue [Unknown]
  - Skin burning sensation [Unknown]
  - Accidental exposure to product [Unknown]
  - Application site burn [Unknown]
